FAERS Safety Report 8028190-2 (Version None)
Quarter: 2012Q1

REPORT INFORMATION
  Report Type: 
  Country: None (occurrence: None)
  Receive Date: 20120106
  Receipt Date: 20111228
  Transmission Date: 20120608
  Serious: Yes (Hospitalization)
  Sender: FDA-Public Use
  Company Number: FR-UCBSA-048423

PATIENT
  Age: 59 Year
  Sex: Male

DRUGS (3)
  1. NEUPRO [Suspect]
     Dosage: DAILY DOSE: 2 MG
     Route: 062
     Dates: start: 20110701, end: 20110706
  2. NEUPRO [Suspect]
     Indication: PARKINSON'S DISEASE
     Dosage: DAILY DOSE: 6 MG
     Route: 062
     Dates: start: 20110713, end: 20110805
  3. NEUPRO [Suspect]
     Dosage: DAILY DOSE: 4 MG
     Route: 062
     Dates: start: 20110707, end: 20110712

REACTIONS (7)
  - HYPERTONIA [None]
  - WITHDRAWAL SYNDROME [None]
  - LIBIDO INCREASED [None]
  - AGITATION [None]
  - BACK PAIN [None]
  - HALLUCINATION [None]
  - PERSECUTORY DELUSION [None]
